FAERS Safety Report 5110164-2 (Version None)
Quarter: 2006Q3

REPORT INFORMATION
  Report Type: 
  Country: None (occurrence: None)
  Receive Date: 20060921
  Receipt Date: 20060908
  Transmission Date: 20061208
  Serious: Yes (Death, Other)
  Sender: FDA-Public Use
  Company Number: CA-AVENTIS-200614779EU

PATIENT
  Age: 42 Year
  Sex: Female

DRUGS (22)
  1. RILUTEK [Suspect]
     Indication: AMYOTROPHIC LATERAL SCLEROSIS
     Route: 048
     Dates: end: 20060908
  2. GRAVOL TAB [Concomitant]
     Route: 030
  3. ZOPICLONE [Concomitant]
     Route: 048
  4. DURAGESIC-100 [Concomitant]
     Route: 061
  5. MORPHINE [Concomitant]
     Route: 058
  6. MAXERAN [Concomitant]
     Route: 048
  7. BACLOFEN [Concomitant]
     Route: 048
  8. LOSEC [Concomitant]
     Route: 048
  9. SULCRATE PLUS [Concomitant]
     Route: 048
  10. IPRATROPIUM BROMIDE [Concomitant]
     Dosage: DOSE: 1 NEBULE FOUR TIMES DAILY
     Route: 055
  11. SCOPOLAMINE [Concomitant]
     Dosage: DOSE: EVERY 4 HRS DURING THE DAY, AS NEEDED AT NIGHT
  12. ORAJEL [Concomitant]
     Route: 061
  13. LYRICA [Concomitant]
     Route: 048
     Dates: end: 20060903
  14. LORAZEPAM [Concomitant]
     Dates: end: 20060903
  15. CLONAZEPAM [Concomitant]
     Dates: end: 20060903
  16. PROMETHAZINE [Concomitant]
     Dates: end: 20060903
  17. DEXTROMETHORPHAN HYDROBROMIDE [Concomitant]
     Route: 048
     Dates: end: 20060903
  18. AMITRIPTYLINE HCL [Concomitant]
     Route: 048
     Dates: end: 20060903
  19. SERTRALINE [Concomitant]
     Route: 048
     Dates: end: 20060903
  20. TYLENOL NO. 3 (CANADA) [Concomitant]
     Route: 048
     Dates: end: 20060903
  21. NABILONE [Concomitant]
     Route: 048
     Dates: end: 20060903
  22. ZANAFLEX [Concomitant]

REACTIONS (3)
  - COMA [None]
  - DEATH [None]
  - HAEMORRHAGE [None]
